FAERS Safety Report 4744708-7 (Version None)
Quarter: 2005Q3

REPORT INFORMATION
  Report Type: 
  Country: None (occurrence: None)
  Receive Date: 20050812
  Receipt Date: 20050812
  Transmission Date: 20060218
  Serious: Yes (Death, Hospitalization)
  Sender: FDA-Public Use
  Company Number: None

PATIENT
  Sex: Male
  Weight: 75.2 kg

DRUGS (2)
  1. INFLIXIMAB [Suspect]
     Indication: NEOPLASM
     Dosage: SEE IMAGE
     Route: 042
     Dates: start: 20050127, end: 20050224
  2. DOCETAXEL [Suspect]
     Dosage: SEE IMAGE
     Dates: start: 20050127, end: 20050127

REACTIONS (5)
  - CORONARY ARTERY OCCLUSION [None]
  - FALL [None]
  - MYOCARDIAL INFARCTION [None]
  - MYOCARDIAL ISCHAEMIA [None]
  - SUPRAVENTRICULAR TACHYCARDIA [None]
